FAERS Safety Report 5348447-3 (Version None)
Quarter: 2007Q2

REPORT INFORMATION
  Report Type: 
  Country: None (occurrence: None)
  Receive Date: 20070606
  Receipt Date: 20070525
  Transmission Date: 20071010
  Serious: Yes (Hospitalization)
  Sender: FDA-Public Use
  Company Number: NO-PFIZER INC-2007039029

PATIENT
  Sex: Male

DRUGS (4)
  1. XALATAN [Suspect]
     Indication: GLAUCOMA
     Route: 047
  2. TRUSOPT [Concomitant]
     Indication: GLAUCOMA
     Route: 047
  3. ALBYL-ENTEROSOLUBILE [Concomitant]
     Dosage: DAILY DOSE:160MG
     Route: 048
  4. ANTIHYPERTENSIVES [Concomitant]
     Route: 048

REACTIONS (2)
  - HEART RATE DECREASED [None]
  - SURGERY [None]
